FAERS Safety Report 4317523-6 (Version None)
Quarter: 2004Q1

REPORT INFORMATION
  Report Type: 
  Country: None (occurrence: None)
  Receive Date: 20040312
  Receipt Date: 20040303
  Transmission Date: 20041129
  Serious: Yes (Death, Hospitalization)
  Sender: FDA-Public Use
  Company Number: 163-20785-04010287 (0)

PATIENT
  Age: 84 Year
  Sex: Male

DRUGS (1)
  1. THALOMID [Suspect]
     Indication: MULTIPLE MYELOMA
     Dosage: 100 MG, BID, ORAL
     Route: 048
     Dates: start: 20021004, end: 20021020

REACTIONS (3)
  - HIP FRACTURE [None]
  - RENAL FAILURE [None]
  - SEPSIS [None]
